FAERS Safety Report 16489604 (Version 1)
Quarter: 2019Q2

REPORT INFORMATION
  Report Type: Spontaneous
  Country: US (occurrence: US)
  Receive Date: 20190628
  Receipt Date: 20190628
  Transmission Date: 20190711
  Serious: No
  Sender: FDA-Public Use
  Company Number: US-ACCORD-070394

PATIENT
  Age: 26 Year
  Sex: Male

DRUGS (1)
  1. CLONAZEPAM ACCORD [Suspect]
     Active Substance: CLONAZEPAM
     Indication: SEIZURE
     Dosage: STRENGTH: 0.5 MG
     Dates: start: 201804

REACTIONS (2)
  - Sedation [Unknown]
  - Product substitution issue [Unknown]
